FAERS Safety Report 8884006 (Version 1)
Quarter: 2012Q4

REPORT INFORMATION
  Report Type: 
  Country: US (occurrence: US)
  Receive Date: 20121102
  Receipt Date: 20121102
  Transmission Date: 20130627
  Serious: No
  Sender: FDA-Public Use
  Company Number: US-ASTRAZENECA-2012SE26425

PATIENT
  Age: 63 Year
  Sex: Female

DRUGS (5)
  1. CRESTOR [Suspect]
     Route: 048
  2. PROZAC [Suspect]
     Route: 065
  3. ELAVIL [Concomitant]
  4. PAXIL [Concomitant]
  5. XANAX [Concomitant]

REACTIONS (5)
  - Decreased appetite [Unknown]
  - Insomnia [Unknown]
  - Malaise [Unknown]
  - Weight increased [Unknown]
  - Dizziness [Unknown]
